FAERS Safety Report 5717500-4 (Version None)
Quarter: 2008Q2

REPORT INFORMATION
  Report Type: 
  Country: None (occurrence: None)
  Receive Date: 20080425
  Receipt Date: 20080421
  Transmission Date: 20081010
  Serious: Yes (Hospitalization, Other)
  Sender: FDA-Public Use
  Company Number: DE-WYE-G01433908

PATIENT
  Sex: Male
  Weight: 75 kg

DRUGS (2)
  1. VENLAFAXINE HCL [Suspect]
     Dosage: 60 CAPSULES (OVERDOSE AMOUNT 9000MG)
     Route: 048
     Dates: start: 20080420, end: 20080420
  2. TRAZODONE HCL [Suspect]
     Dosage: 10 TABLETS (OVERDOSE AMOUNT 250MG)
     Route: 048
     Dates: start: 20080420, end: 20080420

REACTIONS (6)
  - DRUG ABUSE [None]
  - ELECTROCARDIOGRAM QRS COMPLEX PROLONGED [None]
  - INTENTIONAL OVERDOSE [None]
  - NAUSEA [None]
  - TACHYCARDIA [None]
  - VERTIGO [None]
